FAERS Safety Report 20239014 (Version 2)
Quarter: 2022Q1

REPORT INFORMATION
  Report Type: Report from Study
  Country: IT (occurrence: IT)
  Receive Date: 20211228
  Receipt Date: 20220104
  Transmission Date: 20220423
  Serious: Yes (Other)
  Sender: FDA-Public Use
  Company Number: None

PATIENT
  Age: 95 Year
  Sex: Female

DRUGS (1)
  1. IBUPROFEN [Suspect]
     Active Substance: IBUPROFEN
     Indication: Antiinflammatory therapy
     Dosage: 600 MILLIGRAM, QD
     Route: 048
     Dates: start: 20211106, end: 20211107

REACTIONS (3)
  - Abscess soft tissue [Recovering/Resolving]
  - Oedema mucosal [Recovering/Resolving]
  - Epistaxis [Recovering/Resolving]

NARRATIVE: CASE EVENT DATE: 20211107
